FAERS Safety Report 6711602-1 (Version None)
Quarter: 2010Q2

REPORT INFORMATION
  Report Type: 
  Country: None (occurrence: None)
  Receive Date: 20100505
  Receipt Date: 20100429
  Transmission Date: 20101027
  Serious: Yes (Death, Hospitalization, Other)
  Sender: FDA-Public Use
  Company Number: PHHY2009CA10539

PATIENT
  Sex: Female

DRUGS (26)
  1. ACLASTA [Suspect]
     Indication: OSTEOPOROSIS
     Dosage: UNK
     Route: 042
     Dates: start: 20090120
  2. SYNTHROID [Concomitant]
     Dosage: 0.088 MG/DAY
  3. CELEBREX [Concomitant]
     Dosage: 200 MG/DAY
  4. PARIET [Concomitant]
  5. ALDACTONE [Concomitant]
     Dosage: 50 MG A DAY
  6. VITAMIN D [Concomitant]
  7. CALCIUM [Concomitant]
     Dosage: 2 TABLETS DAILY
  8. SINGULAIR [Concomitant]
     Dosage: 10 MG/DAY
  9. PROZAC [Concomitant]
     Dosage: 10 MG/DAY
  10. VERSED [Concomitant]
     Dosage: 10 MG
     Route: 042
  11. BISACODYL [Concomitant]
     Dosage: 5 MG ONE TO TWO P.O, BID
     Route: 048
  12. HALDOL [Concomitant]
     Dosage: 1 MG P.O Q6H/ PRN
     Route: 048
  13. MIRTAZAPINE [Concomitant]
     Dosage: 30 MG AT H.S.,
  14. CLONAZEPAM [Concomitant]
     Dosage: 0.5 MG AT H.S
  15. KETAMINE [Concomitant]
     Indication: PAIN
     Dosage: 10 MG SUBCU Q.30 MINUTES P.R.N.
     Route: 058
  16. METHADONE HYDROCHLORIDE [Concomitant]
     Dosage: 40 MG/DAY. 10 MG TWO IN THE MORNING AND TWO AT NIGHT
  17. NOROXIN [Concomitant]
     Dosage: 400 MG P.O. B.I.D FOR FIVE DAYS
     Route: 048
  18. CAV [Concomitant]
     Dosage: TWO CYLES OF CAV CHEMOTHERAPY
  19. NEULASTA [Concomitant]
  20. SERAX [Concomitant]
     Dosage: 15 MG AT BEDTIME
  21. CEFTAZIDIME [Concomitant]
     Route: 042
  22. RABEPRAZOLE SODIUM [Concomitant]
     Dosage: 20 MG/DAY
  23. OXAZEPAM [Concomitant]
  24. ACETAMINOPHEN [Concomitant]
     Dosage: 1000 MG/DAY
  25. SPIRONOLACTONE [Concomitant]
     Dosage: 100 MG/DAY
  26. MACROBID [Concomitant]
     Dosage: 100 MG, BID

REACTIONS (28)
  - ABDOMINAL DISCOMFORT [None]
  - ABDOMINAL DISTENSION [None]
  - ABDOMINAL PAIN [None]
  - ANXIETY [None]
  - ASCITES [None]
  - ASTHENIA [None]
  - CHROMATURIA [None]
  - COLON ADENOMA [None]
  - COLONIC POLYP [None]
  - CONFUSIONAL STATE [None]
  - FATIGUE [None]
  - FEBRILE NEUTROPENIA [None]
  - HAEMORRHOIDS [None]
  - HEPATOMEGALY [None]
  - HYPOKALAEMIA [None]
  - JAUNDICE [None]
  - JAUNDICE CHOLESTATIC [None]
  - JOINT SWELLING [None]
  - METASTASES TO LIVER [None]
  - MUCOSAL INFLAMMATION [None]
  - NAUSEA [None]
  - NEUROENDOCRINE TUMOUR [None]
  - PAIN [None]
  - PYELONEPHRITIS [None]
  - RASH [None]
  - RECTAL PROLAPSE [None]
  - SMALL CELL LUNG CANCER METASTATIC [None]
  - WEIGHT DECREASED [None]
